FAERS Safety Report 12249676 (Version 1)
Quarter: 2016Q2

REPORT INFORMATION
  Report Type: Spontaneous
  Country: US (occurrence: US)
  Receive Date: 20160408
  Receipt Date: 20160408
  Transmission Date: 20160815
  Serious: No
  Sender: FDA-Public Use
  Company Number: US-PFIZER INC-2016192811

PATIENT
  Age: 64 Year
  Sex: Female

DRUGS (2)
  1. OMEPRAZOLE. [Interacting]
     Active Substance: OMEPRAZOLE
     Indication: GASTROOESOPHAGEAL REFLUX DISEASE
     Dosage: UNK
  2. TYGACIL [Suspect]
     Active Substance: TIGECYCLINE
     Dosage: UNK

REACTIONS (1)
  - Drug interaction [Unknown]
